FAERS Safety Report 6842072-0 (Version None)
Quarter: 2010Q3

REPORT INFORMATION
  Report Type: 
  Country: None (occurrence: None)
  Receive Date: 20100714
  Receipt Date: 20070718
  Transmission Date: 20110219
  Serious: No
  Sender: FDA-Public Use
  Company Number: US-PFIZER INC-2007060843

PATIENT
  Sex: Female
  Weight: 96.6 kg

DRUGS (7)
  1. CHANTIX [Suspect]
     Indication: SMOKING CESSATION THERAPY
     Dates: start: 20070527
  2. XANAX [Concomitant]
  3. SOMA [Concomitant]
  4. HYDROCODONE [Concomitant]
  5. CELEBREX [Concomitant]
     Indication: ARTHRITIS
  6. BACTRIM [Concomitant]
  7. NEXIUM [Concomitant]
     Indication: GASTROOESOPHAGEAL REFLUX DISEASE

REACTIONS (3)
  - NAUSEA [None]
  - SLEEP DISORDER [None]
  - VOMITING [None]
